FAERS Safety Report 5688140-0 (Version None)
Quarter: 2008Q1

REPORT INFORMATION
  Report Type: 
  Country: None (occurrence: None)
  Receive Date: 20080327
  Receipt Date: 20080318
  Transmission Date: 20080703
  Serious: Yes (Hospitalization)
  Sender: FDA-Public Use
  Company Number: 144-20785-08031387

PATIENT
  Age: 46 Year
  Sex: Male
  Weight: 80 kg

DRUGS (3)
  1. THALIDOMIDE [Suspect]
     Indication: MULTIPLE MYELOMA
     Dosage: 100 MG, PER DAY, ORAL
     Route: 048
     Dates: start: 20080212, end: 20080309
  2. VELCADE [Suspect]
     Indication: MULTIPLE MYELOMA
     Dosage: 1.3 MG, INTRAVENOUS
     Route: 042
     Dates: start: 20080212, end: 20080222
  3. DEXAMETHASONE TAB [Suspect]
     Indication: MULTIPLE MYELOMA
     Dosage: 40 MG, PER DAY, ORAL
     Route: 048
     Dates: start: 20080212, end: 20080222

REACTIONS (1)
  - ILEUS PARALYTIC [None]
